FAERS Safety Report 10082830 (Version 2)
Quarter: 2014Q2

REPORT INFORMATION
  Report Type: Report from Study
  Country: BR (occurrence: BR)
  Receive Date: 20140416
  Receipt Date: 20140617
  Transmission Date: 20141212
  Serious: Yes (Other)
  Sender: FDA-Public Use
  Company Number: PHHY2014BR044055

PATIENT
  Sex: Female
  Weight: 40 kg

DRUGS (6)
  1. FORASEQ [Suspect]
     Indication: ASTHMA
     Dosage: 200 UG, BID DAILY
     Route: 055
  2. FORASEQ [Suspect]
     Dosage: 400 UG, BID DAILY
     Route: 055
  3. FORASEQ [Suspect]
     Dosage: 200 UG, BID (DAILY)
     Route: 055
     Dates: end: 20140401
  4. OMEPRAZOLE [Concomitant]
     Indication: GASTROINTESTINAL DISORDER
     Dosage: UNK UKN, UNK
  5. NEXIUM//ESOMEPRAZOLE MAGNESIUM [Concomitant]
     Dosage: 20 MG, UNK
  6. ANCORON [Concomitant]
     Indication: CARDIAC DISORDER
     Dosage: UNK UKN, UNK

REACTIONS (9)
  - Chronic obstructive pulmonary disease [Recovering/Resolving]
  - Dyspnoea [Recovering/Resolving]
  - Mitral valve prolapse [Recovering/Resolving]
  - Fatigue [Recovering/Resolving]
  - Dizziness [Recovering/Resolving]
  - Agitation [Recovering/Resolving]
  - Nervousness [Recovering/Resolving]
  - Tremor [Recovering/Resolving]
  - Drug ineffective [Recovering/Resolving]
